FAERS Safety Report 26041950 (Version 1)
Quarter: 2025Q4

REPORT INFORMATION
  Report Type: Spontaneous
  Country: JP (occurrence: JP)
  Receive Date: 20251113
  Receipt Date: 20251113
  Transmission Date: 20260118
  Serious: Yes (Other)
  Sender: MERCK SHARP & DOHME LLC
  Company Number: JP-ONO-2021JP017825

PATIENT

DRUGS (2)
  1. SITAGLIPTIN [Suspect]
     Active Substance: SITAGLIPTIN
     Indication: Type 2 diabetes mellitus
     Dosage: DOSE DESCRIPTION : 50 MG
     Route: 048
  2. PALIPERIDONE PALMITATE [Concomitant]
     Active Substance: PALIPERIDONE PALMITATE
     Dosage: DOSE DESCRIPTION : UNK
     Route: 065

REACTIONS (14)
  - Intestinal obstruction [Unknown]
  - Renal impairment [Unknown]
  - Visual acuity reduced [Unknown]
  - Anger [Unknown]
  - Dermatitis [Unknown]
  - Asthenia [Unknown]
  - Headache [Unknown]
  - Abdominal discomfort [Unknown]
  - Abdominal pain [Unknown]
  - Constipation [Unknown]
  - Myalgia [Unknown]
  - Hepatic function abnormal [Unknown]
  - Urticaria [Unknown]
  - Arthralgia [Unknown]
